FAERS Safety Report 10201513 (Version 1)
Quarter: 2014Q2

REPORT INFORMATION
  Report Type: Spontaneous
  Country: US (occurrence: US)
  Receive Date: 20140528
  Receipt Date: 20140528
  Transmission Date: 20141212
  Serious: Yes (Congenital Anomaly, Other)
  Sender: FDA-Public Use
  Company Number: US-ELI_LILLY_AND_COMPANY-US201405006870

PATIENT
  Sex: Female

DRUGS (1)
  1. PROZAC [Suspect]
     Indication: PRODUCT USED FOR UNKNOWN INDICATION
     Route: 064

REACTIONS (4)
  - Atrial septal defect [Unknown]
  - Anomalous pulmonary venous connection [Unknown]
  - Transposition of the great vessels [Unknown]
  - Foetal exposure during pregnancy [Unknown]
